FAERS Safety Report 9555415 (Version 1)
Quarter: 2013Q3

REPORT INFORMATION
  Report Type: Spontaneous
  Country: US (occurrence: None)
  Receive Date: 20130925
  Receipt Date: 20130925
  Transmission Date: 20140515
  Serious: No
  Sender: FDA-Public Use
  Company Number: None

PATIENT
  Age: 9 Year
  Sex: Female
  Weight: 50.2 kg

DRUGS (1)
  1. SUPPRELIN [Suspect]
     Dates: start: 20130813, end: 20130923

REACTIONS (1)
  - Device extrusion [None]
